FAERS Safety Report 14394149 (Version 2)
Quarter: 2018Q1

REPORT INFORMATION
  Report Type: Report from Study
  Country: CN (occurrence: CN)
  Receive Date: 20180116
  Receipt Date: 20180131
  Transmission Date: 20180509
  Serious: Yes (Death, Hospitalization, Other)
  Sender: FDA-Public Use
  Company Number: CN-BAYER-2017-142147

PATIENT
  Sex: Female

DRUGS (1)
  1. STIVARGA [Suspect]
     Active Substance: REGORAFENIB
     Indication: COLORECTAL CANCER
     Dosage: 160 MG, UNK
     Route: 048
     Dates: start: 20170719, end: 20171225

REACTIONS (15)
  - Dizziness [None]
  - Red blood cell count decreased [Recovering/Resolving]
  - Herpes dermatitis [None]
  - Palmar-plantar erythrodysaesthesia syndrome [Unknown]
  - Pain [Recovering/Resolving]
  - Alopecia [Not Recovered/Not Resolved]
  - Diarrhoea [Not Recovered/Not Resolved]
  - Frequent bowel movements [Not Recovered/Not Resolved]
  - Fatigue [Unknown]
  - Decreased interest [None]
  - Death [Fatal]
  - Diarrhoea [Not Recovered/Not Resolved]
  - Peripheral swelling [Not Recovered/Not Resolved]
  - Asthenia [None]
  - Back pain [Recovering/Resolving]

NARRATIVE: CASE EVENT DATE: 20170724
